FAERS Safety Report 23317083 (Version 3)
Quarter: 2024Q4

REPORT INFORMATION
  Report Type: Spontaneous
  Country: US (occurrence: US)
  Receive Date: 20231219
  Receipt Date: 20241017
  Transmission Date: 20250115
  Serious: No
  Sender: ROCHE
  Company Number: US-ROCHE-3364916

PATIENT
  Age: 21 Year
  Sex: Male

DRUGS (4)
  1. HEMLIBRA [Suspect]
     Active Substance: EMICIZUMAB-KXWH
     Indication: Factor VIII deficiency
     Dosage: STRENGTH: 60MG/0.4ML
     Route: 058
     Dates: start: 202303
  2. HEMLIBRA [Suspect]
     Active Substance: EMICIZUMAB-KXWH
     Route: 058
     Dates: start: 202303
  3. HEMLIBRA [Suspect]
     Active Substance: EMICIZUMAB-KXWH
     Route: 058
     Dates: start: 202303
  4. ELOCTATE [Concomitant]
     Active Substance: EFMOROCTOCOG ALFA

REACTIONS (2)
  - Haemorrhage [Recovered/Resolved]
  - Skin laceration [Unknown]

NARRATIVE: CASE EVENT DATE: 20231003
